FAERS Safety Report 20092901 (Version 1)
Quarter: 2021Q4

REPORT INFORMATION
  Report Type: Spontaneous
  Country: GB (occurrence: GB)
  Receive Date: 20211120
  Receipt Date: 20211120
  Transmission Date: 20220303
  Serious: Yes (Disabling)
  Sender: FDA-Public Use
  Company Number: GB-MHRA-EYC 00265434

PATIENT
  Age: 59 Year
  Sex: Female
  Weight: 120.65 kg

DRUGS (5)
  1. CITALOPRAM [Suspect]
     Active Substance: CITALOPRAM HYDROBROMIDE
     Indication: Product used for unknown indication
     Dosage: 10 MILLIGRAM, UNK
     Route: 048
     Dates: start: 20140101, end: 20211102
  2. ATORVASTATIN [Concomitant]
     Active Substance: ATORVASTATIN
     Indication: Product used for unknown indication
     Dosage: UNK
     Route: 065
  3. SARS-COV-2 [Concomitant]
     Active Substance: SARS-COV-2
     Indication: COVID-19 immunisation
     Dosage: DOSE 3C
     Route: 065
  4. DOXAZOSIN MESYLATE [Concomitant]
     Active Substance: DOXAZOSIN MESYLATE
     Indication: Product used for unknown indication
     Dosage: UNK
     Route: 065
  5. OLMESARTAN [Concomitant]
     Active Substance: OLMESARTAN
     Indication: Product used for unknown indication
     Dosage: UNK
     Route: 065

REACTIONS (4)
  - Electric shock sensation [Not Recovered/Not Resolved]
  - Dizziness [Not Recovered/Not Resolved]
  - Malaise [Not Recovered/Not Resolved]
  - Drug withdrawal syndrome [Not Recovered/Not Resolved]

NARRATIVE: CASE EVENT DATE: 20160101
